FAERS Safety Report 23900156 (Version 1)
Quarter: 2024Q2

REPORT INFORMATION
  Report Type: Report from Study
  Country: US (occurrence: US)
  Receive Date: 20240526
  Receipt Date: 20240526
  Transmission Date: 20240716
  Serious: Yes (Death, Congenital Anomaly, Other)
  Sender: FDA-Public Use
  Company Number: US-ABBVIE-5772588

PATIENT

DRUGS (1)
  1. HUMIRA [Suspect]
     Active Substance: ADALIMUMAB
     Indication: Maternal exposure timing unspecified
     Dosage: CITRATE FREE?FORM STRENGTH- 40 MG
     Route: 064

REACTIONS (2)
  - Heart disease congenital [Fatal]
  - Foetal exposure during pregnancy [Unknown]
